FAERS Safety Report 19374947 (Version 1)
Quarter: 2021Q2

REPORT INFORMATION
  Report Type: Spontaneous
  Country: US (occurrence: US)
  Receive Date: 20210604
  Receipt Date: 20210604
  Transmission Date: 20210717
  Serious: Yes (Hospitalization, Other)
  Sender: FDA-Public Use
  Company Number: US-TEVA-2021-US-1918627

PATIENT
  Age: 66 Year
  Sex: Male
  Weight: 85.73 kg

DRUGS (3)
  1. PFIZER?BIONTECH COVID?19 VACCINE [Suspect]
     Active Substance: TOZINAMERAN
     Route: 030
     Dates: start: 20210521
  2. CLONAZEPAM. [Suspect]
     Active Substance: CLONAZEPAM
     Dosage: 1 1/2 TABLETS BY MOUTH TWICE DAILY
     Route: 048
     Dates: start: 2016
  3. PFIZER?BIONTECH COVID?19 VACCINE [Suspect]
     Active Substance: TOZINAMERAN
     Indication: PROPHYLAXIS
     Route: 030
     Dates: start: 20210403

REACTIONS (19)
  - Hospitalisation [Unknown]
  - Hyperhidrosis [Recovering/Resolving]
  - Dementia [Unknown]
  - Fall [Unknown]
  - Weight decreased [Unknown]
  - Muscular weakness [Recovering/Resolving]
  - Vomiting [Recovering/Resolving]
  - Vision blurred [Recovering/Resolving]
  - Illness [Unknown]
  - Diarrhoea [Recovering/Resolving]
  - Muscle spasms [Recovering/Resolving]
  - Nausea [Unknown]
  - Tremor [Unknown]
  - Dizziness [Recovered/Resolved with Sequelae]
  - Nasopharyngitis [Recovering/Resolving]
  - Dehydration [Recovering/Resolving]
  - Anxiety [Recovering/Resolving]
  - Muscular weakness [Not Recovered/Not Resolved]
  - Dizziness [Not Recovered/Not Resolved]

NARRATIVE: CASE EVENT DATE: 20210403
